FAERS Safety Report 20628438 (Version 1)
Quarter: 2022Q1

REPORT INFORMATION
  Report Type: Spontaneous
  Country: US (occurrence: US)
  Receive Date: 20220323
  Receipt Date: 20220323
  Transmission Date: 20220424
  Serious: No
  Sender: FDA-Public Use
  Company Number: US-NOVARTISTESTPH-NVSC2022US065643

PATIENT
  Age: 46 Year
  Sex: Female

DRUGS (1)
  1. METHYLPREDNISOLONE [Suspect]
     Active Substance: METHYLPREDNISOLONE
     Indication: Plantar fasciitis
     Dosage: 4 MG (21 TABLET)
     Route: 065
     Dates: start: 20220131, end: 20220205

REACTIONS (9)
  - Dry mouth [Unknown]
  - Lip exfoliation [Unknown]
  - Nightmare [Unknown]
  - Rash [Unknown]
  - Candida infection [Unknown]
  - Hypertension [Unknown]
  - Condition aggravated [Unknown]
  - Hypertrichosis [Unknown]
  - Depressed mood [Unknown]
